FAERS Safety Report 9475859 (Version 2)
Quarter: 2013Q4

REPORT INFORMATION
  Report Type: Spontaneous
  Country: US (occurrence: US)
  Receive Date: 20130826
  Receipt Date: 20131004
  Transmission Date: 20140711
  Serious: Yes (Hospitalization)
  Sender: FDA-Public Use
  Company Number: US-BIOGENIDEC-2013BI076366

PATIENT
  Age: 35 Year
  Sex: Male

DRUGS (2)
  1. AVONEX [Suspect]
     Indication: MULTIPLE SCLEROSIS
     Route: 030
     Dates: start: 201301
  2. AVONEX [Suspect]
     Indication: MULTIPLE SCLEROSIS
     Route: 030
     Dates: start: 20130501

REACTIONS (10)
  - Eye disorder [Recovered/Resolved]
  - Vision blurred [Recovered/Resolved]
  - Muscle twitching [Recovered/Resolved]
  - General symptom [Recovered/Resolved]
  - Tremor [Recovered/Resolved]
  - Headache [Recovered/Resolved]
  - Muscle spasms [Recovered/Resolved]
  - Tenderness [Not Recovered/Not Resolved]
  - Tendonitis [Not Recovered/Not Resolved]
  - Influenza like illness [Not Recovered/Not Resolved]
